FAERS Safety Report 14044672 (Version 1)
Quarter: 2017Q4

REPORT INFORMATION
  Report Type: Spontaneous
  Country: US (occurrence: US)
  Receive Date: 20171005
  Receipt Date: 20171005
  Transmission Date: 20180321
  Serious: Yes (Life-Threatening, Hospitalization, Disabling)
  Sender: FDA-Public Use
  Company Number: None

PATIENT
  Age: 42 Year
  Sex: Female
  Weight: 90 kg

DRUGS (9)
  1. VITAMIN B12 [Concomitant]
     Active Substance: CYANOCOBALAMIN
  2. DIAZEPAM. [Suspect]
     Active Substance: DIAZEPAM
     Indication: HYPOTONIA
     Route: 048
  3. TRAZODONE [Concomitant]
     Active Substance: TRAZODONE HYDROCHLORIDE
  4. DIAZEPAM. [Suspect]
     Active Substance: DIAZEPAM
     Indication: PAIN
     Route: 048
  5. CLONEZAPAM [Suspect]
     Active Substance: CLONAZEPAM
     Indication: MYALGIA
     Route: 048
     Dates: start: 20150106, end: 20170416
  6. DIAZEPAM. [Suspect]
     Active Substance: DIAZEPAM
     Indication: ANXIETY
     Route: 048
  7. CLONEZAPAM [Suspect]
     Active Substance: CLONAZEPAM
     Indication: ANXIETY
     Route: 048
     Dates: start: 20150106, end: 20170416
  8. VITAMIN D3 [Concomitant]
     Active Substance: CHOLECALCIFEROL
  9. CYMBALTA [Concomitant]
     Active Substance: DULOXETINE HYDROCHLORIDE

REACTIONS (43)
  - Diplopia [None]
  - Cognitive disorder [None]
  - Palpitations [None]
  - Chest pain [None]
  - Pyrexia [None]
  - Depersonalisation/derealisation disorder [None]
  - Night sweats [None]
  - Hallucinations, mixed [None]
  - Vertigo [None]
  - Migraine [None]
  - Depression [None]
  - Chills [None]
  - Dyspnoea [None]
  - Dizziness [None]
  - Diarrhoea [None]
  - Withdrawal syndrome [None]
  - Impaired work ability [None]
  - Myalgia [None]
  - Skin infection [None]
  - Cough [None]
  - Derealisation [None]
  - Vomiting [None]
  - Therapy change [None]
  - Tardive dyskinesia [None]
  - Drug dependence [None]
  - Intrusive thoughts [None]
  - Sleep terror [None]
  - Nightmare [None]
  - Agoraphobia [None]
  - Apparent death [None]
  - Paraesthesia [None]
  - Grip strength decreased [None]
  - Hyperhidrosis [None]
  - Pruritus [None]
  - Anxiety [None]
  - Bone pain [None]
  - Judgement impaired [None]
  - Memory impairment [None]
  - Suicidal ideation [None]
  - Pain [None]
  - Rosacea [None]
  - Social anxiety disorder [None]
  - Feeling abnormal [None]

NARRATIVE: CASE EVENT DATE: 20150106
